FAERS Safety Report 15939001 (Version 2)
Quarter: 2019Q2

REPORT INFORMATION
  Report Type: Report from Study
  Country: US (occurrence: US)
  Receive Date: 20190208
  Receipt Date: 20190403
  Transmission Date: 20190711
  Serious: Yes (Hospitalization)
  Sender: FDA-Public Use
  Company Number: US-JNJFOC-20190201906

PATIENT
  Age: 20 Year
  Sex: Male
  Weight: 90.72 kg

DRUGS (3)
  1. HIZENTRA [Concomitant]
     Active Substance: HUMAN IMMUNOGLOBULIN G
     Route: 065
     Dates: end: 201901
  2. REMICADE [Suspect]
     Active Substance: INFLIXIMAB
     Indication: INFLAMMATORY BOWEL DISEASE
     Route: 042
     Dates: start: 20050807, end: 20100507
  3. REMICADE [Suspect]
     Active Substance: INFLIXIMAB
     Indication: INFLAMMATORY BOWEL DISEASE
     Route: 042
     Dates: start: 20130731, end: 20140424

REACTIONS (2)
  - Catheter site cellulitis [Not Recovered/Not Resolved]
  - Bacterial sepsis [Not Recovered/Not Resolved]

NARRATIVE: CASE EVENT DATE: 20180829
